FAERS Safety Report 5030404-8 (Version None)
Quarter: 2006Q2

REPORT INFORMATION
  Report Type: 
  Country: None (occurrence: None)
  Receive Date: 20060614
  Receipt Date: 20060608
  Transmission Date: 20061013
  Serious: Yes (Disabling)
  Sender: FDA-Public Use
  Company Number: HQWYE035708JUN06

PATIENT
  Age: 73 Year
  Sex: Male

DRUGS (3)
  1. CORDAREX (AMIODARONE, TABLET) [Suspect]
     Indication: ATRIAL FIBRILLATION
     Dosage: 200 MG 1X PER 1 DAY
     Route: 048
     Dates: start: 20051101, end: 20051101
  2. METOPROLOL SUCCINATE [Concomitant]
  3. RAMIPRIL [Concomitant]

REACTIONS (2)
  - CHRONIC SINUSITIS [None]
  - URTICARIA CHRONIC [None]
